FAERS Safety Report 24629330 (Version 2)
Quarter: 2025Q3

REPORT INFORMATION
  Report Type: Spontaneous
  Country: US (occurrence: US)
  Receive Date: 20241118
  Receipt Date: 20250816
  Transmission Date: 20251021
  Serious: Yes (Other)
  Sender: ALEXION PHARMACEUTICALS
  Company Number: US-AstraZeneca-CH-00726045A

PATIENT
  Sex: Female

DRUGS (2)
  1. BREZTRI [Suspect]
     Active Substance: BUDESONIDE\FORMOTEROL\GLYCOPYRROLATE
     Indication: Asthma
  2. SYMBICORT [Suspect]
     Active Substance: BUDESONIDE\FORMOTEROL FUMARATE DIHYDRATE
     Indication: Asthma

REACTIONS (13)
  - Oesophageal candidiasis [Unknown]
  - Cough [Unknown]
  - Inflammation [Unknown]
  - Productive cough [Unknown]
  - Dysphagia [Unknown]
  - Hernia [Unknown]
  - Pollakiuria [Unknown]
  - Wheezing [Unknown]
  - Oropharyngeal discomfort [Unknown]
  - Pulmonary function test decreased [Unknown]
  - Fungal infection [Unknown]
  - Intentional dose omission [Unknown]
  - Intentional product misuse [Unknown]
